FAERS Safety Report 5814312-8 (Version None)
Quarter: 2008Q3

REPORT INFORMATION
  Report Type: 
  Country: None (occurrence: None)
  Receive Date: 20080711
  Receipt Date: 20080630
  Transmission Date: 20090109
  Serious: Yes (Death)
  Sender: FDA-Public Use
  Company Number: S08-USA-02264-01

PATIENT
  Age: 59 Year
  Sex: Male
  Weight: 87.5 kg

DRUGS (21)
  1. CELEXA [Suspect]
     Dates: start: 20070226, end: 20070324
  2. ENBREL [Suspect]
     Indication: LUNG DISORDER
     Dosage: 25 MG BIW
     Dates: start: 20070306, end: 20070320
  3. METHYLPREDNISOLONE [Suspect]
     Dates: start: 20070321, end: 20070325
  4. MYCOPHENOLATE MOFETIL [Suspect]
     Dates: start: 20070228, end: 20070325
  5. GANCICLOVIR [Suspect]
     Dates: start: 20070321, end: 20070325
  6. PANTOPRAZOLE SODIUM [Concomitant]
  7. SALMETEROL/FLUTICASONE [Concomitant]
  8. TIOTROPIUM [Concomitant]
  9. MONTELUKAST SODIUM [Concomitant]
  10. MORPHINE [Concomitant]
  11. ATOVAQUONE [Concomitant]
  12. CALCIUM ACETATE [Concomitant]
  13. INSULIN GLARGINE [Concomitant]
  14. ACETAMINOPHEN [Concomitant]
  15. DEXTROSE 50% IN WATER [Concomitant]
  16. DIPHENHYDRAMINE HCL [Concomitant]
  17. VANCOMYCIN HCL [Concomitant]
  18. MEROPENEM [Concomitant]
  19. VORICONAZOLE [Concomitant]
  20. INSULIN ASPART [Concomitant]
  21. OXYCODONE HCL [Concomitant]

REACTIONS (14)
  - BACTERIAL INFECTION [None]
  - BLOOD CULTURE POSITIVE [None]
  - CHEST X-RAY ABNORMAL [None]
  - DYSPNOEA EXERTIONAL [None]
  - FUNGUS CULTURE POSITIVE [None]
  - GENERAL PHYSICAL HEALTH DETERIORATION [None]
  - GRAFT VERSUS HOST DISEASE [None]
  - HAEMODIALYSIS [None]
  - LUNG INFILTRATION [None]
  - PNEUMONIA [None]
  - PNEUMOTHORAX [None]
  - RENAL FAILURE [None]
  - RESPIRATORY FAILURE [None]
  - STAPHYLOCOCCAL INFECTION [None]
